FAERS Safety Report 8344537-1 (Version None)
Quarter: 2012Q2

REPORT INFORMATION
  Report Type: 
  Country: None (occurrence: None)
  Receive Date: 20120508
  Receipt Date: 20120503
  Transmission Date: 20120825
  Serious: Yes (Other)
  Sender: FDA-Public Use
  Company Number: PHHY2012DE027974

PATIENT
  Sex: Female
  Weight: 85 kg

DRUGS (8)
  1. CALCIUM [Concomitant]
     Dosage: 600 MG, DAILY
     Route: 048
  2. XELODA [Concomitant]
     Indication: METASTATIC NEOPLASM
     Dosage: 4000 MG, UNK
     Dates: start: 20110530
  3. ZOMETA [Suspect]
     Indication: BONE DISORDER
     Dosage: 3.5 MG, EVERY 4 WEEKS
     Dates: start: 20110127, end: 20120330
  4. VITAMIN D [Concomitant]
     Dosage: 400 IE, DAILY
     Route: 048
  5. NAVELBINE [Concomitant]
  6. CO-DIOVANE [Concomitant]
     Dosage: 2X 1/2
  7. AVASTIN [Concomitant]
     Indication: METASTATIC NEOPLASM
     Dosage: 1275 MG, EVERY 3 WEEKS
     Route: 042
     Dates: start: 20101025
  8. TAXOL [Concomitant]
     Dosage: UNK UKN, UNK
     Dates: start: 20101025

REACTIONS (7)
  - BONE LESION [None]
  - APHAGIA [None]
  - LOOSE TOOTH [None]
  - ERYTHEMA [None]
  - OSTEONECROSIS OF JAW [None]
  - SKIN SWELLING [None]
  - BONE PAIN [None]
